FAERS Safety Report 6358567-2 (Version None)
Quarter: 2009Q3

REPORT INFORMATION
  Report Type: 
  Country: None (occurrence: None)
  Receive Date: 20090914
  Receipt Date: 20090903
  Transmission Date: 20100115
  Serious: Yes (Other)
  Sender: FDA-Public Use
  Company Number: CERZ-1000908

PATIENT
  Age: 22 Year
  Sex: Male
  Weight: 63.5 kg

DRUGS (4)
  1. CEREZYME [Suspect]
     Indication: GAUCHER'S DISEASE
     Dosage: 5000 U, Q2W; INTRAVENOUS
     Route: 042
     Dates: start: 20081101
  2. DECADRON [Concomitant]
  3. BENADRYL [Concomitant]
  4. TYLENOL [Concomitant]

REACTIONS (8)
  - BLOOD POTASSIUM DECREASED [None]
  - BONE PAIN [None]
  - CHILLS [None]
  - DEHYDRATION [None]
  - INAPPROPRIATE SCHEDULE OF DRUG ADMINISTRATION [None]
  - INFECTION [None]
  - PYREXIA [None]
  - WEIGHT DECREASED [None]
